FAERS Safety Report 7128350-9 (Version None)
Quarter: 2010Q4

REPORT INFORMATION
  Report Type: 
  Country: None (occurrence: None)
  Receive Date: 20101130
  Receipt Date: 20101116
  Transmission Date: 20110411
  Serious: Yes (Hospitalization)
  Sender: FDA-Public Use
  Company Number: FR-NAPPMUNDI-GBR-2010-0007368

PATIENT
  Age: 70 Year
  Sex: Male

DRUGS (9)
  1. MORPHINE SULFATE [Suspect]
     Indication: CANCER PAIN
     Route: 048
  2. TARDYFERON                         /00023503/ [Concomitant]
     Dosage: 80 MG, UNK
     Route: 065
  3. MOPRAL                             /00661201/ [Concomitant]
     Dosage: 20 MG, UNK
     Route: 065
  4. LEXOMIL [Concomitant]
     Route: 065
  5. TEMESTA                            /00273201/ [Concomitant]
     Route: 065
  6. DUPHALAC [Concomitant]
     Route: 065
  7. LEVOTHYROXINE SODIUM [Concomitant]
     Dosage: 100 MCG, UNK
     Route: 065
  8. LEVOTHYROXINE SODIUM [Concomitant]
     Dosage: 75 MCG, UNK
     Route: 065
  9. AXITINIB [Concomitant]
     Route: 065

REACTIONS (5)
  - ANAEMIA [None]
  - DECREASED APPETITE [None]
  - DIARRHOEA [None]
  - FAECALOMA [None]
  - PSYCHOMOTOR SKILLS IMPAIRED [None]
